FAERS Safety Report 14390441 (Version 2)
Quarter: 2018Q3

REPORT INFORMATION
  Report Type: Report from Study
  Country: None (occurrence: DE)
  Receive Date: 20180116
  Receipt Date: 20180802
  Transmission Date: 20181010
  Serious: Yes (Hospitalization, Other)
  Sender: FDA-Public Use
  Company Number: DE-ABBVIE-18K-062-2223173-00

PATIENT
  Age: 55 Year
  Sex: Male

DRUGS (9)
  1. MTX [Concomitant]
     Active Substance: METHOTREXATE SODIUM
     Dates: start: 201402
  2. MTX [Concomitant]
     Active Substance: METHOTREXATE SODIUM
     Dates: start: 2017, end: 2018
  3. MTX [Concomitant]
     Active Substance: METHOTREXATE SODIUM
     Dates: start: 2018
  4. HUMIRA [Suspect]
     Active Substance: ADALIMUMAB
     Indication: RHEUMATOID ARTHRITIS
     Route: 058
     Dates: start: 201403
  5. MTX [Concomitant]
     Active Substance: METHOTREXATE SODIUM
     Dates: start: 2015, end: 2016
  6. CIMZIA [Concomitant]
     Active Substance: CERTOLIZUMAB PEGOL
     Indication: PRODUCT USED FOR UNKNOWN INDICATION
     Dates: start: 201308
  7. CIMZIA [Concomitant]
     Active Substance: CERTOLIZUMAB PEGOL
     Dates: start: 201402
  8. ROACTEMRA [Concomitant]
     Active Substance: TOCILIZUMAB
     Indication: PRODUCT USED FOR UNKNOWN INDICATION
     Dates: start: 201609, end: 201612
  9. MTX [Concomitant]
     Active Substance: METHOTREXATE SODIUM
     Indication: PRODUCT USED FOR UNKNOWN INDICATION
     Dates: start: 201308, end: 201402

REACTIONS (2)
  - Intervertebral disc protrusion [Recovered/Resolved]
  - Intervertebral disc protrusion [Unknown]

NARRATIVE: CASE EVENT DATE: 20170615
